FAERS Safety Report 7928998-5 (Version None)
Quarter: 2011Q4

REPORT INFORMATION
  Report Type: 
  Country: None (occurrence: None)
  Receive Date: 20111118
  Receipt Date: 20111110
  Transmission Date: 20120403
  Serious: Yes (Other)
  Sender: FDA-Public Use
  Company Number: US-AMGEN-USASP2011043355

PATIENT
  Age: 51 Year
  Sex: Male
  Weight: 99.773 kg

DRUGS (4)
  1. REMICADE [Concomitant]
     Dosage: UNK
  2. ENBREL [Suspect]
     Indication: RHEUMATOID ARTHRITIS
     Dosage: 50 MG, QWK
     Route: 058
     Dates: start: 20110523, end: 20110815
  3. LEFLUNOMIDE [Concomitant]
     Dosage: UNK
     Dates: start: 20110418
  4. PREDNISONE TAB [Concomitant]
     Dosage: UNK

REACTIONS (6)
  - KERATITIS [None]
  - VISION BLURRED [None]
  - ULCERATIVE KERATITIS [None]
  - PHOTOPHOBIA [None]
  - EYE PAIN [None]
  - EYE SWELLING [None]
